FAERS Safety Report 9115212 (Version 1)
Quarter: 2013Q1

REPORT INFORMATION
  Report Type: Spontaneous
  Country: CN (occurrence: None)
  Receive Date: 20130129
  Receipt Date: 20130129
  Transmission Date: 20140127
  Serious: No
  Sender: FDA-Public Use
  Company Number: VAL_01352_2013

PATIENT
  Age: 82 Year
  Sex: Female
  Weight: 65 kg

DRUGS (1)
  1. LOTENSIN (LOTENSIN-BENAZEPRIL HYDROCHLORIDE) [Suspect]
     Indication: CORONARY ARTERY DISEASE
     Route: 048
     Dates: start: 20110301, end: 20110302

REACTIONS (2)
  - Tongue paralysis [None]
  - Hypoaesthesia oral [None]
